FAERS Safety Report 4583842-1 (Version None)
Quarter: 2005Q1

REPORT INFORMATION
  Report Type: 
  Country: None (occurrence: None)
  Receive Date: 20050125
  Receipt Date: 20041025
  Transmission Date: 20050727
  Serious: No
  Sender: FDA-Public Use
  Company Number: USA041082024

PATIENT
  Age: 70 Year
  Sex: Female
  Weight: 77 kg

DRUGS (5)
  1. FORTEO [Suspect]
     Indication: OSTEOPOROSIS
     Dosage: 20 UG/1 DAY
     Dates: start: 20040801
  2. CITRACAL WITH VITAMIN D [Concomitant]
  3. DAILY VITAMIN [Concomitant]
  4. BIOTIN [Concomitant]
  5. SOY [Concomitant]

REACTIONS (1)
  - SKIN DISCOLOURATION [None]
